FAERS Safety Report 7277124 (Version 9)
Quarter: 2013Q3

REPORT INFORMATION
  Report Type: Spontaneous
  Country: US (occurrence: US)
  Receive Date: 20100212
  Receipt Date: 20130809
  Transmission Date: 20140515
  Serious: Yes (Hospitalization, Other)
  Sender: FDA-Public Use
  Company Number: US-ROCHE-645182

PATIENT
  Age: 16 Year
  Sex: Female
  Weight: 61.2 kg

DRUGS (6)
  1. ACCUTANE [Suspect]
     Indication: ACNE
     Route: 048
  2. ACCUTANE [Suspect]
     Route: 048
     Dates: start: 200211, end: 200310
  3. ACCUTANE [Suspect]
     Route: 048
  4. CLINDAMYCIN [Concomitant]
  5. TETRACYCLINE [Concomitant]
  6. CLEOCIN [Concomitant]

REACTIONS (16)
  - Crohn^s disease [Unknown]
  - Fistula [Unknown]
  - Small intestinal obstruction [Unknown]
  - Deep vein thrombosis [Unknown]
  - Crohn^s disease [Unknown]
  - Inflammatory bowel disease [Unknown]
  - Psoriatic arthropathy [Unknown]
  - Depression [Unknown]
  - Rheumatoid arthritis [Unknown]
  - Irritable bowel syndrome [Unknown]
  - Dry eye [Recovered/Resolved]
  - Nasal dryness [Recovered/Resolved]
  - Dry skin [Unknown]
  - Skin papilloma [Unknown]
  - Dermatitis [Unknown]
  - Pruritus [Unknown]
